FAERS Safety Report 10580831 (Version 2)
Quarter: 2014Q4

REPORT INFORMATION
  Report Type: Spontaneous
  Country: US (occurrence: None)
  Receive Date: 20141110
  Receipt Date: 20141231
  Transmission Date: 20150529
  Serious: Yes (Death)
  Sender: FDA-Public Use
  Company Number: US-MDCO-14-00256

PATIENT
  Age: 54 Year
  Sex: Female
  Weight: 62.2 kg

DRUGS (1)
  1. ANGIOMAX [Suspect]
     Active Substance: BIVALIRUDIN
     Indication: CATHETERISATION CARDIAC
     Dosage: 52.05 MG; 0.75 MG/KG
     Route: 040
     Dates: start: 20140929, end: 20140929

REACTIONS (6)
  - Drug ineffective [None]
  - Supraventricular tachycardia [None]
  - Cardiac arrest [None]
  - Coagulation time abnormal [None]
  - Ventricular tachycardia [None]
  - Anaemia [None]

NARRATIVE: CASE EVENT DATE: 20140929
